FAERS Safety Report 7777428-5 (Version None)
Quarter: 2011Q3

REPORT INFORMATION
  Report Type: 
  Country: None (occurrence: None)
  Receive Date: 20110922
  Receipt Date: 20110806
  Transmission Date: 20111222
  Serious: Yes (Death)
  Sender: FDA-Public Use
  Company Number: 11-552

PATIENT
  Age: 55 Year
  Sex: Male

DRUGS (11)
  1. SIMVASTATIN [Concomitant]
  2. DIAZEPAM [Concomitant]
  3. OMEPRAZOLE [Concomitant]
  4. CHLORPROMAZINE [Concomitant]
  5. VALPROATE SODIUM [Concomitant]
  6. LACTULOSE [Concomitant]
  7. IBUPROFEN [Suspect]
     Indication: PAIN
     Dosage: 600MG-QD
  8. CLOZAPINE [Suspect]
     Indication: SCHIZOPHRENIA
     Dosage: 400MG-BID ORAL
     Route: 048
     Dates: start: 20081211, end: 20110807
  9. PROCYCLIDINE HYDROCHLORIDE 2MG TAB [Concomitant]
  10. VITAMIN B COMPLEX CAP [Concomitant]
  11. CYTALOPRAM [Concomitant]

REACTIONS (12)
  - OTORRHOEA [None]
  - NEUTROPHIL COUNT INCREASED [None]
  - SCHIZOPHRENIA [None]
  - MALIGNANT MELANOMA [None]
  - ANXIETY DISORDER [None]
  - METASTASES TO CENTRAL NERVOUS SYSTEM [None]
  - MONOCYTE COUNT INCREASED [None]
  - GENERAL PHYSICAL HEALTH DETERIORATION [None]
  - WHITE BLOOD CELL COUNT INCREASED [None]
  - PNEUMONIA ASPIRATION [None]
  - CHRONIC OBSTRUCTIVE PULMONARY DISEASE [None]
  - HAEMOPTYSIS [None]
